FAERS Safety Report 21945263 (Version 1)
Quarter: 2023Q1

REPORT INFORMATION
  Report Type: Spontaneous
  Country: US (occurrence: US)
  Receive Date: 20230202
  Receipt Date: 20230202
  Transmission Date: 20230418
  Serious: Yes (Other)
  Sender: FDA-Public Use
  Company Number: US-SANOFI-01468760

PATIENT
  Age: 80 Year
  Sex: Male

DRUGS (1)
  1. LANTUS SOLOSTAR [Suspect]
     Active Substance: INSULIN GLARGINE
     Indication: Type 2 diabetes mellitus
     Dosage: 45 IU, 1X
     Dates: start: 2019

REACTIONS (4)
  - Vestibular neuronitis [Unknown]
  - COVID-19 [Unknown]
  - Vertigo [Unknown]
  - Expired device used [Unknown]

NARRATIVE: CASE EVENT DATE: 20220901
